FAERS Safety Report 25290569 (Version 2)
Quarter: 2025Q2

REPORT INFORMATION
  Report Type: Spontaneous
  Country: US (occurrence: US)
  Receive Date: 20250510
  Receipt Date: 20250527
  Transmission Date: 20250717
  Serious: Yes (Death, Hospitalization, Other)
  Sender: MADRIGAL PHARMACEUTICALS
  Company Number: US-MADRIGAL PHARMACEUTICALS, INC-2025REZ5053

PATIENT

DRUGS (2)
  1. REZDIFFRA [Suspect]
     Active Substance: RESMETIROM
     Indication: Metabolic dysfunction-associated steatohepatitis
     Route: 048
     Dates: start: 202409
  2. ATORVASTATIN [Concomitant]
     Active Substance: ATORVASTATIN

REACTIONS (8)
  - Hepatic failure [Fatal]
  - Hepatitis alcoholic [Unknown]
  - Acute kidney injury [Unknown]
  - Lethargy [Unknown]
  - Fatigue [Unknown]
  - Blood bilirubin abnormal [Unknown]
  - Liver function test abnormal [Unknown]
  - Decreased appetite [Unknown]
